FAERS Safety Report 5154306-1 (Version None)
Quarter: 2006Q4

REPORT INFORMATION
  Report Type: 
  Country: None (occurrence: None)
  Receive Date: 20061114
  Receipt Date: 20061102
  Transmission Date: 20070319
  Serious: Yes (Hospitalization)
  Sender: FDA-Public Use
  Company Number: MEDI-0005103

PATIENT
  Age: 23 Month
  Sex: 0

DRUGS (5)
  1. SYNAGIS [Suspect]
     Indication: ANTIVIRAL PROPHYLAXIS
     Dosage: 150 MG, INTRAMUSCULAR; SEE IMAGE
     Route: 030
     Dates: start: 20051026, end: 20060303
  2. SYNAGIS [Suspect]
     Indication: ANTIVIRAL PROPHYLAXIS
     Dosage: 150 MG, INTRAMUSCULAR; SEE IMAGE
     Route: 030
     Dates: start: 20051026
  3. SYNAGIS [Suspect]
     Indication: ANTIVIRAL PROPHYLAXIS
     Dosage: 150 MG, INTRAMUSCULAR; SEE IMAGE
     Route: 030
     Dates: start: 20051125
  4. SYNAGIS [Suspect]
     Indication: ANTIVIRAL PROPHYLAXIS
     Dosage: 150 MG, INTRAMUSCULAR; SEE IMAGE
     Route: 030
     Dates: start: 20060106
  5. SYNAGIS [Suspect]
     Indication: ANTIVIRAL PROPHYLAXIS
     Dosage: 150 MG, INTRAMUSCULAR; SEE IMAGE
     Route: 030
     Dates: start: 20060210

REACTIONS (1)
  - CONVULSION [None]
